FAERS Safety Report 9299302 (Version 1)
Quarter: 2013Q2

REPORT INFORMATION
  Report Type: Spontaneous
  Country: GB (occurrence: GB)
  Receive Date: 20130520
  Receipt Date: 20130520
  Transmission Date: 20140414
  Serious: Yes (Other)
  Sender: FDA-Public Use
  Company Number: PHHY2013GB049015

PATIENT
  Age: 68 Year
  Sex: Male
  Weight: 104 kg

DRUGS (4)
  1. SIMVASTATIN [Suspect]
     Indication: HYPERLIPIDAEMIA
     Dosage: 40 MG, UNK
     Route: 048
     Dates: start: 201301, end: 20130314
  2. BISOPROLOL [Concomitant]
     Dosage: 3.75 MG, UNK
     Route: 048
     Dates: start: 2010
  3. ASPIRIN [Concomitant]
     Dosage: 75 MG, UNK
     Route: 048
     Dates: start: 2010
  4. CANDESARTAN [Concomitant]
     Dosage: 16 MG, UNK
     Route: 048
     Dates: start: 2010

REACTIONS (4)
  - Suicidal ideation [Recovered/Resolved]
  - Toothache [Recovered/Resolved]
  - Nightmare [Recovered/Resolved]
  - Musculoskeletal pain [Recovered/Resolved]
